FAERS Safety Report 9604144 (Version 1)
Quarter: 2013Q4

REPORT INFORMATION
  Report Type: Spontaneous
  Country: GB (occurrence: GB)
  Receive Date: 20131008
  Receipt Date: 20131008
  Transmission Date: 20140711
  Serious: Yes (Other)
  Sender: FDA-Public Use
  Company Number: GB-ACCORD-019683

PATIENT
  Age: 44 Year
  Sex: Male
  Weight: 57 kg

DRUGS (6)
  1. RITONAVIR [Concomitant]
  2. RALTEGRAVIR [Concomitant]
  3. DARUNAVIR [Concomitant]
  4. TRUVADA [Concomitant]
  5. MYCOPHENOLATE MOFETIL [Suspect]
     Indication: THROMBOCYTOPENIA
     Route: 048
     Dates: start: 20130913, end: 20130916
  6. LANSOPRAZOLE [Concomitant]

REACTIONS (5)
  - Penile swelling [Recovered/Resolved]
  - Urinary retention [Recovered/Resolved]
  - Pyrexia [Recovered/Resolved]
  - Pain [Unknown]
  - Off label use [Unknown]
